FAERS Safety Report 4396573-8 (Version None)
Quarter: 2004Q3

REPORT INFORMATION
  Report Type: 
  Country: None (occurrence: None)
  Receive Date: 20040712
  Receipt Date: 20040629
  Transmission Date: 20050211
  Serious: Yes (Other)
  Sender: FDA-Public Use
  Company Number: 2004036228

PATIENT
  Age: 77 Year
  Sex: Male

DRUGS (7)
  1. LIPITOR [Suspect]
     Indication: HYPERLIPIDAEMIA
     Dosage: 5 MG (1 IN 1 D), ORAL
     Route: 048
     Dates: start: 20030730, end: 20040518
  2. ALL OTHER THERAPEUTIC PRODUCTS [Concomitant]
  3. CANDESARTAN CILEXETIL (CANDESARTAN CILEXETIL) [Concomitant]
  4. AMLODIPINE BESYLATE [Concomitant]
  5. TAMSULOSIN HYDROCHLORIDE (TAMSULOSIN HYDROCHLORIDE) [Concomitant]
  6. ECABET MONOSODIUM (ECABET MONOSODIUM) [Concomitant]
  7. RANITIDINE HYDROCHLORIDE [Concomitant]

REACTIONS (2)
  - HEPATIC STEATOSIS [None]
  - RHABDOMYOLYSIS [None]
